FAERS Safety Report 12939689 (Version 3)
Quarter: 2017Q1

REPORT INFORMATION
  Report Type: Spontaneous
  Country: GB (occurrence: GB)
  Receive Date: 20161114
  Receipt Date: 20170110
  Transmission Date: 20170428
  Serious: Yes (Hospitalization)
  Sender: FDA-Public Use
  Company Number: GB-VERTEX PHARMACEUTICALS-2016-006317

PATIENT
  Age: 28 Year
  Sex: Male

DRUGS (18)
  1. VITAMIN D+A [Concomitant]
     Dosage: 2 DF, DAILY
  2. SERETIDE [Concomitant]
     Active Substance: FLUTICASONE PROPIONATE\SALMETEROL XINAFOATE
     Dosage: 2 PUFFS, BID
     Route: 055
  3. AZITHROMYCIN ANHYDROUS. [Concomitant]
     Active Substance: AZITHROMYCIN ANHYDROUS
     Dosage: 1 DF, DAILY
  4. CETRIZINE [Concomitant]
     Active Substance: CETIRIZINE HYDROCHLORIDE
     Dosage: 1 DF, QD
  5. LEVEMIR [Concomitant]
     Active Substance: INSULIN DETEMIR
  6. ALENDRONIC ACID [Concomitant]
     Active Substance: ALENDRONIC ACID
     Dosage: 4 DF, QW
  7. CALCICHEW [Concomitant]
     Active Substance: CALCIUM CARBONATE
     Dosage: 1 DF, BID
  8. NEBUSAL [Concomitant]
  9. SIRDUPLA [Concomitant]
     Dosage: 1 DF, BID
     Route: 055
  10. CREON [Concomitant]
     Active Substance: PANCRELIPASE AMYLASE\PANCRELIPASE LIPASE\PANCRELIPASE PROTEASE
     Dosage: 35- 40 PER DAY
  11. NOVORAPID [Concomitant]
     Active Substance: INSULIN ASPART
     Dosage: IMMEDIATELY BEFORE MEALS OR WHEN NECESSARY SHORTLY AFTER MEALS
     Route: 058
  12. OMEPRAZOLE. [Concomitant]
     Active Substance: OMEPRAZOLE
  13. TERBUTALINE [Concomitant]
     Active Substance: TERBUTALINE
     Dosage: 1 PUFF WHEN REQUIRED
  14. MENADIOL [Concomitant]
     Active Substance: MENADIOL
     Dosage: 1 DF, DAILY
  15. VITAMIN E [Concomitant]
     Active Substance: .ALPHA.-TOCOPHEROL
     Dosage: 1 DF, QD
  16. KALYDECO [Suspect]
     Active Substance: IVACAFTOR
     Indication: CYSTIC FIBROSIS
     Dosage: 150 MG, BID
     Route: 048
     Dates: start: 20130206
  17. COCODAMOL [Concomitant]
     Active Substance: ACETAMINOPHEN\CODEINE PHOSPHATE
     Dosage: 2 DF, FOUR TIMES A DAY
  18. DORNASE ALFA [Concomitant]
     Active Substance: DORNASE ALFA
     Dosage: 1 DF, QD
     Route: 055

REACTIONS (1)
  - Infective pulmonary exacerbation of cystic fibrosis [Recovered/Resolved]

NARRATIVE: CASE EVENT DATE: 20161021
